FAERS Safety Report 4417489-4 (Version None)
Quarter: 2004Q3

REPORT INFORMATION
  Report Type: 
  Country: None (occurrence: None)
  Receive Date: 20040804
  Receipt Date: 20040720
  Transmission Date: 20050211
  Serious: Yes (Death)
  Sender: FDA-Public Use
  Company Number: 04-07-1037

PATIENT
  Age: 49 Year
  Sex: Male

DRUGS (6)
  1. PACLITAXEL [Suspect]
     Indication: KAPOSI'S SARCOMA
     Dosage: 100MG/M2 INTRAVENOUS
     Route: 042
  2. LOPINAVIR/RITONAVIR [Suspect]
     Indication: KAPOSI'S SARCOMA
     Dosage: 400MG BID
  3. DELAVIRDINE [Suspect]
     Indication: KAPOSI'S SARCOMA
     Dosage: 600MG BID
  4. DIDANOSINE CAPSULES [Suspect]
     Indication: KAPOSI'S SARCOMA
     Dosage: 400MG ER QD
  5. NEUPOGEN [Concomitant]
  6. ANTIBIOTICS [Concomitant]

REACTIONS (18)
  - ALPHA HAEMOLYTIC STREPTOCOCCAL INFECTION [None]
  - ARTHRALGIA [None]
  - CARDIAC DISORDER [None]
  - ELECTROMECHANICAL DISSOCIATION [None]
  - EMBOLISM [None]
  - GENERAL PHYSICAL HEALTH DETERIORATION [None]
  - HAEMATOCRIT DECREASED [None]
  - HYPOTENSION [None]
  - LUNG INFILTRATION [None]
  - MUCOSAL INFLAMMATION [None]
  - MYALGIA [None]
  - PLATELET COUNT DECREASED [None]
  - PNEUMONIA STREPTOCOCCAL [None]
  - PRODUCTIVE COUGH [None]
  - PULMONARY ARTERIAL PRESSURE INCREASED [None]
  - PYREXIA [None]
  - TACHYPNOEA [None]
  - WHITE BLOOD CELL COUNT DECREASED [None]
